FAERS Safety Report 12563713 (Version 1)
Quarter: 2016Q3

REPORT INFORMATION
  Report Type: Report from Study
  Country: DE (occurrence: DE)
  Receive Date: 20160716
  Receipt Date: 20160716
  Transmission Date: 20161109
  Serious: Yes (Hospitalization)
  Sender: FDA-Public Use
  Company Number: US-ASTRAZENECA-2016SE75243

PATIENT
  Age: 418 Day
  Sex: Male
  Weight: 9.2 kg

DRUGS (6)
  1. MONTELUKAST [Concomitant]
     Active Substance: MONTELUKAST SODIUM
     Indication: PRODUCT USED FOR UNKNOWN INDICATION
     Dates: start: 201511, end: 201604
  2. SYNAGIS [Suspect]
     Active Substance: PALIVIZUMAB
     Indication: PREMATURE BABY
     Dosage: 126.0MG ONCE/SINGLE ADMINISTRATION
     Route: 030
     Dates: start: 20150928, end: 20150928
  3. SYNAGIS [Suspect]
     Active Substance: PALIVIZUMAB
     Indication: PREMATURE BABY
     Dosage: 134.0MG ONCE/SINGLE ADMINISTRATION
     Route: 030
     Dates: start: 20151026, end: 20151026
  4. SYNAGIS [Suspect]
     Active Substance: PALIVIZUMAB
     Indication: PREMATURE BABY
     Dosage: 134.0MG ONCE/SINGLE ADMINISTRATION
     Route: 030
     Dates: start: 20151123, end: 20151123
  5. SYNAGIS [Suspect]
     Active Substance: PALIVIZUMAB
     Indication: PREMATURE BABY
     Dosage: 140.0MG ONCE/SINGLE ADMINISTRATION
     Route: 030
     Dates: start: 20151221, end: 20151221
  6. SALBUTAMOL [Concomitant]
     Active Substance: ALBUTEROL
     Indication: PRODUCT USED FOR UNKNOWN INDICATION

REACTIONS (2)
  - Bronchitis [Recovering/Resolving]
  - Viral infection [Recovering/Resolving]

NARRATIVE: CASE EVENT DATE: 20151219
